FAERS Safety Report 6692373-4 (Version None)
Quarter: 2010Q2

REPORT INFORMATION
  Report Type: 
  Country: None (occurrence: None)
  Receive Date: 20100419
  Receipt Date: 20100406
  Transmission Date: 20101027
  Serious: Yes (Hospitalization)
  Sender: FDA-Public Use
  Company Number: 7000724

PATIENT
  Age: 32 Year
  Sex: Male

DRUGS (5)
  1. REBIF [Suspect]
     Indication: MULTIPLE SCLEROSIS
     Dosage: 44 MCG, 3 IN 1 WK, SUBCUTANEOUS
     Route: 058
     Dates: start: 20091217
  2. INHALER (OTHER ANTI-ASTHMATICS, INHALANTS) [Concomitant]
  3. UNSPECIFIED PAIN MEDICATIONS (ALL OTHER THERAPEUTIC PRODUCTS) [Concomitant]
  4. TYLENOL (COTYLENOL) [Concomitant]
  5. VICODIN [Concomitant]

REACTIONS (1)
  - ASTHMA [None]
